FAERS Safety Report 11891406 (Version 2)
Quarter: 2016Q1

REPORT INFORMATION
  Report Type: Report from Study
  Country: US (occurrence: US)
  Receive Date: 20160106
  Receipt Date: 20160106
  Transmission Date: 20160526
  Serious: No
  Sender: FDA-Public Use
  Company Number: US-009507513-1512USA011341

PATIENT
  Age: 33 Year

DRUGS (1)
  1. IMPLANON [Suspect]
     Active Substance: ETONOGESTREL
     Dosage: UNK
     Route: 059
     Dates: start: 20150605, end: 20151221

REACTIONS (2)
  - Fungal infection [Unknown]
  - Medical device removal [Unknown]

NARRATIVE: CASE EVENT DATE: 2015
